FAERS Safety Report 14593625 (Version 1)
Quarter: 2018Q1

REPORT INFORMATION
  Report Type: Report from Study
  Country: US (occurrence: US)
  Receive Date: 20180302
  Receipt Date: 20180302
  Transmission Date: 20180509
  Serious: No
  Sender: FDA-Public Use
  Company Number: PHEH2018US008063

PATIENT
  Sex: Female

DRUGS (1)
  1. LETROZOLE. [Suspect]
     Active Substance: LETROZOLE
     Indication: PRODUCT USED FOR UNKNOWN INDICATION
     Dosage: UNK
     Route: 065
     Dates: start: 201607

REACTIONS (7)
  - Hot flush [Unknown]
  - Tendonitis [Unknown]
  - Myalgia [Unknown]
  - Constipation [Unknown]
  - Arthralgia [Unknown]
  - Insomnia [Unknown]
  - Poor quality sleep [Unknown]
